FAERS Safety Report 8724420 (Version 4)
Quarter: 2013Q1

REPORT INFORMATION
  Report Type: Spontaneous
  Country: US (occurrence: US)
  Receive Date: 20120815
  Receipt Date: 20130125
  Transmission Date: 20140127
  Serious: Yes (Hospitalization, Other)
  Sender: FDA-Public Use
  Company Number: PHEH2012US006048

PATIENT
  Age: 28 None
  Sex: Male

DRUGS (11)
  1. EXJADE [Suspect]
     Indication: IRON OVERLOAD
     Dosage: UNK UKN, UNK
     Dates: start: 2007
  2. EXJADE [Suspect]
     Dosage: 500 MG, TID
     Route: 048
     Dates: start: 20080822
  3. EXJADE [Suspect]
     Dosage: 500 MG, TID
     Route: 048
     Dates: end: 20120807
  4. DILAUDID [Concomitant]
     Dosage: UNK UKN, UNK
  5. MORPHINE [Concomitant]
     Dosage: UNK UKN, UNK
  6. NEURONTIN [Concomitant]
     Dosage: UNK UKN, UNK
  7. LIPROZIL [Concomitant]
     Dosage: UNK UKN, UNK
  8. ALBUTEROL [Concomitant]
     Dosage: UNK UKN, UNK
  9. ADVAIR [Concomitant]
     Dosage: UNK UKN, UNK
  10. CALCITONIN [Concomitant]
     Dosage: UNK UKN, UNK
  11. KLONOPIN [Concomitant]
     Dosage: UNK UKN, UNK

REACTIONS (13)
  - Fall [Unknown]
  - Infection [Recovering/Resolving]
  - Jaundice [Unknown]
  - Pyrexia [Unknown]
  - Chromaturia [Unknown]
  - Asthenia [Not Recovered/Not Resolved]
  - Deafness unilateral [Not Recovered/Not Resolved]
  - Blood iron increased [Recovering/Resolving]
  - Abdominal pain upper [Unknown]
  - Dizziness [Not Recovered/Not Resolved]
  - Nausea [Recovering/Resolving]
  - Vomiting [Unknown]
  - Diarrhoea [Unknown]
